FAERS Safety Report 8784777 (Version 3)
Quarter: 2013Q1

REPORT INFORMATION
  Report Type: Report from Study
  Country: JP (occurrence: JP)
  Receive Date: 20120914
  Receipt Date: 20130207
  Transmission Date: 20140127
  Serious: Yes (Death, Hospitalization)
  Sender: FDA-Public Use
  Company Number: JP-EISAI INC-E7389-02976-CLI-JP

PATIENT
  Age: 74 Year
  Sex: Female
  Weight: 45 kg

DRUGS (14)
  1. HALAVEN [Suspect]
     Indication: BREAST CANCER RECURRENT
     Route: 041
     Dates: start: 20120725, end: 20120725
  2. HALAVEN [Suspect]
     Indication: METASTASES TO LUNG
     Route: 041
     Dates: start: 20120711, end: 20120711
  3. HALAVEN [Suspect]
     Indication: METASTASES TO LIVER
     Route: 041
     Dates: start: 20120620, end: 20120627
  4. HALAVEN [Suspect]
     Route: 041
     Dates: start: 20120516, end: 20120524
  5. HALAVEN [Suspect]
     Route: 041
     Dates: start: 20120425, end: 20120502
  6. HALAVEN [Suspect]
     Route: 041
     Dates: start: 20111130, end: 20120411
  7. LENDORMIN [Concomitant]
     Route: 048
  8. MUCOSTA [Concomitant]
     Route: 048
  9. METHYCOBAL [Concomitant]
     Route: 048
  10. LORFENAMIN [Concomitant]
     Route: 048
  11. PREGABALIN [Concomitant]
     Route: 048
  12. REBAMIPIDE [Concomitant]
     Route: 048
  13. GOSHAJINKIGAN (CHINESE HERBAL MEDICINE) [Concomitant]
     Route: 048
  14. PRIMPERAN [Concomitant]
     Route: 048

REACTIONS (2)
  - Cystitis haemorrhagic [Recovering/Resolving]
  - Malignant neoplasm progression [Fatal]
